FAERS Safety Report 11926839 (Version 3)
Quarter: 2016Q1

REPORT INFORMATION
  Report Type: Report from Study
  Country: CO (occurrence: CO)
  Receive Date: 20160119
  Receipt Date: 20160302
  Transmission Date: 20160526
  Serious: Yes (Death, Hospitalization)
  Sender: FDA-Public Use
  Company Number: PHHY2016CO003738

PATIENT
  Age: 72 Year
  Sex: Female

DRUGS (2)
  1. MORPHINE [Concomitant]
     Active Substance: MORPHINE
     Indication: PAIN
     Dosage: UNK
     Route: 065
     Dates: start: 20151223
  2. VOTRIENT [Suspect]
     Active Substance: PAZOPANIB HYDROCHLORIDE
     Indication: RENAL CANCER METASTATIC
     Dosage: 400 MG, BID
     Route: 048
     Dates: start: 20151104

REACTIONS (7)
  - Pain [Unknown]
  - Asthenia [Unknown]
  - Respiratory arrest [Fatal]
  - Decreased appetite [Unknown]
  - Pallor [Unknown]
  - Metastasis [Fatal]
  - Inflammation [Unknown]

NARRATIVE: CASE EVENT DATE: 20151104
